FAERS Safety Report 10081421 (Version 1)
Quarter: 2014Q2

REPORT INFORMATION
  Report Type: Spontaneous
  Country: US (occurrence: US)
  Receive Date: 20140416
  Receipt Date: 20140416
  Transmission Date: 20141212
  Serious: No
  Sender: FDA-Public Use
  Company Number: US-PFIZER INC-2014104462

PATIENT
  Sex: Female

DRUGS (1)
  1. NEURONTIN [Suspect]
     Dosage: 600 MG, 4X/DAY

REACTIONS (3)
  - Herpes zoster [Unknown]
  - Burning sensation [Unknown]
  - Oral discomfort [Unknown]
